FAERS Safety Report 6061546-6 (Version None)
Quarter: 2009Q1

REPORT INFORMATION
  Report Type: 
  Country: None (occurrence: None)
  Receive Date: 20090129
  Receipt Date: 20090129
  Transmission Date: 20090719
  Serious: No
  Sender: FDA-Public Use
  Company Number: None

PATIENT
  Age: 212 Month
  Sex: Female
  Weight: 89.8122 kg

DRUGS (1)
  1. YAZ [Suspect]
     Indication: POLYCYSTIC OVARIES
     Dosage: 1 PILL ONCE A DAY PO
     Route: 048
     Dates: start: 20090116, end: 20090128

REACTIONS (2)
  - PAIN IN EXTREMITY [None]
  - PELVIC PAIN [None]
